FAERS Safety Report 25390074 (Version 1)
Quarter: 2025Q2

REPORT INFORMATION
  Report Type: Spontaneous
  Country: FR (occurrence: FR)
  Receive Date: 20250603
  Receipt Date: 20250603
  Transmission Date: 20250717
  Serious: Yes (Other)
  Sender: MYLAN
  Company Number: None

PATIENT
  Age: 85 Year
  Sex: Female
  Weight: 70 kg

DRUGS (13)
  1. ALLOPURINOL [Suspect]
     Active Substance: ALLOPURINOL
     Indication: Crystal arthropathy
     Dosage: 100 MILLIGRAM, QOD
     Dates: start: 20250417, end: 20250507
  2. BISOPROLOL FUMARATE [Concomitant]
     Active Substance: BISOPROLOL FUMARATE
  3. KARDEGIC [Concomitant]
     Active Substance: ASPIRIN DL-LYSINE
  4. DIGOXIN [Concomitant]
     Active Substance: DIGOXIN
  5. FUROSEMIDE [Concomitant]
     Active Substance: FUROSEMIDE
  6. COLCHICINE [Concomitant]
     Active Substance: COLCHICINE
  7. SERETIDE [Concomitant]
     Active Substance: FLUTICASONE PROPIONATE\SALMETEROL XINAFOATE
  8. SPIRIVA [Concomitant]
     Active Substance: TIOTROPIUM BROMIDE MONOHYDRATE
  9. POTASSIUM CHLORIDE [Concomitant]
     Active Substance: POTASSIUM CHLORIDE
  10. LEVOTHYROXINE [Concomitant]
     Active Substance: LEVOTHYROXINE
  11. FUNGIZONE [Concomitant]
     Active Substance: AMPHOTERICIN B
  12. NITROGLYCERIN [Concomitant]
     Active Substance: NITROGLYCERIN
  13. ECONAZOLE [Concomitant]
     Active Substance: ECONAZOLE

REACTIONS (1)
  - Diplegia [Recovering/Resolving]

NARRATIVE: CASE EVENT DATE: 20250507
